FAERS Safety Report 8392041-7 (Version None)
Quarter: 2012Q2

REPORT INFORMATION
  Report Type: 
  Country: None (occurrence: None)
  Receive Date: 20120529
  Receipt Date: 20120523
  Transmission Date: 20120825
  Serious: Yes (Other)
  Sender: FDA-Public Use
  Company Number: JP-SANOFI-AVENTIS-200713115JP

PATIENT
  Age: 66 Year
  Sex: Male

DRUGS (4)
  1. DIURETICS [Concomitant]
     Indication: URINE OUTPUT
     Dates: start: 20070101
  2. FLUOROURACIL [Suspect]
     Dosage: DAYS 1, 2, 3, 4 AND 5
     Route: 065
     Dates: start: 20070701
  3. TAXOTERE [Suspect]
     Dosage: DAY 1
     Route: 041
     Dates: start: 20070701
  4. CISPLATIN [Suspect]
     Dosage: DAY 1
     Route: 065
     Dates: start: 20070701

REACTIONS (11)
  - BLOOD OSMOLARITY DECREASED [None]
  - MALAISE [None]
  - DECREASED APPETITE [None]
  - WHITE BLOOD CELL COUNT DECREASED [None]
  - NAUSEA [None]
  - ALTERED STATE OF CONSCIOUSNESS [None]
  - BLOOD ANTIDIURETIC HORMONE INCREASED [None]
  - URINE OSMOLARITY INCREASED [None]
  - ILEUS [None]
  - INAPPROPRIATE ANTIDIURETIC HORMONE SECRETION [None]
  - HYPONATRAEMIA [None]
